FAERS Safety Report 14523268 (Version 1)
Quarter: 2018Q1

REPORT INFORMATION
  Report Type: Spontaneous
  Country: US (occurrence: US)
  Receive Date: 20180212
  Receipt Date: 20180212
  Transmission Date: 20180509
  Serious: No
  Sender: FDA-Public Use
  Company Number: US-VIFOR (INTERNATIONAL) INC.-VIT-2018-01201

PATIENT
  Sex: Male

DRUGS (10)
  1. FUROSEMIDE. [Concomitant]
     Active Substance: FUROSEMIDE
  2. CALCITRIOL. [Concomitant]
     Active Substance: CALCITRIOL
  3. ARANESP (ALBUMIN FREE) [Concomitant]
  4. RENVELA [Concomitant]
     Active Substance: SEVELAMER CARBONATE
  5. SENSIPAR [Concomitant]
     Active Substance: CINACALCET HYDROCHLORIDE
  6. VELTASSA [Suspect]
     Active Substance: PATIROMER
     Indication: HYPERKALAEMIA
     Route: 048
     Dates: start: 20170928
  7. FERROUS SULFATE. [Concomitant]
     Active Substance: FERROUS SULFATE
  8. GLIMEPIRIDE. [Concomitant]
     Active Substance: GLIMEPIRIDE
  9. AMLODIPINE BESILATE [Concomitant]
     Active Substance: AMLODIPINE BESYLATE
  10. LISINOPRIL. [Concomitant]
     Active Substance: LISINOPRIL

REACTIONS (2)
  - Drug dose omission [Unknown]
  - No adverse event [Recovered/Resolved]
